FAERS Safety Report 5429532-4 (Version None)
Quarter: 2007Q3

REPORT INFORMATION
  Report Type: 
  Country: None (occurrence: None)
  Receive Date: 20070829
  Receipt Date: 20061214
  Transmission Date: 20080115
  Serious: No
  Sender: FDA-Public Use
  Company Number: A0631619A

PATIENT
  Age: 75 Year
  Sex: Female

DRUGS (5)
  1. BECONASE AQ [Suspect]
     Indication: EMPHYSEMA
     Route: 045
     Dates: start: 20061101
  2. FOSAMAX [Concomitant]
  3. EVISTA [Concomitant]
  4. PAXIL [Concomitant]
  5. GLUCOSOL [Concomitant]

REACTIONS (1)
  - DRUG INEFFECTIVE [None]
